FAERS Safety Report 9683661 (Version 1)
Quarter: 2013Q4

REPORT INFORMATION
  Report Type: Spontaneous
  Country: FR (occurrence: FR)
  Receive Date: 20131112
  Receipt Date: 20131112
  Transmission Date: 20140711
  Serious: Yes (Hospitalization)
  Sender: FDA-Public Use
  Company Number: FR-ALLERGAN-1317441US

PATIENT
  Age: 79 Year
  Sex: Male

DRUGS (3)
  1. GANFORT [Suspect]
     Indication: GLAUCOMA
     Dosage: 1 DROP IN EACH EYE DAILY IN THE EVENING
     Route: 047
     Dates: start: 201104
  2. AMLOR [Concomitant]
     Indication: HYPERTENSION
  3. HYTACAND [Concomitant]
     Indication: HYPERTENSION

REACTIONS (3)
  - Bradycardia [Unknown]
  - Respiratory disorder [Unknown]
  - Angioedema [Unknown]
